FAERS Safety Report 5755426-0 (Version None)
Quarter: 2008Q2

REPORT INFORMATION
  Report Type: 
  Country: None (occurrence: None)
  Receive Date: 20080529
  Receipt Date: 20080529
  Transmission Date: 20081010
  Serious: Yes (Life-Threatening, Disabling, Other)
  Sender: FDA-Public Use
  Company Number: None

PATIENT
  Age: 69 Year
  Sex: Male
  Weight: 87.0906 kg

DRUGS (1)
  1. DIGITEK 25 MILLIGRAMS BERTEK [Suspect]
     Indication: HEART RATE IRREGULAR
     Dosage: 1 DAY  5-6 YEARS

REACTIONS (8)
  - BLOOD PRESSURE ABNORMAL [None]
  - CONFUSIONAL STATE [None]
  - DECREASED APPETITE [None]
  - ENURESIS [None]
  - MALAISE [None]
  - SLEEP DISORDER [None]
  - THERAPEUTIC AGENT TOXICITY [None]
  - VISUAL DISTURBANCE [None]
